FAERS Safety Report 5928806-8 (Version None)
Quarter: 2008Q4

REPORT INFORMATION
  Report Type: 
  Country: None (occurrence: None)
  Receive Date: 20081020
  Receipt Date: 20080915
  Transmission Date: 20090506
  Serious: Yes (Other)
  Sender: FDA-Public Use
  Company Number: CL002062008

PATIENT
  Sex: Male

DRUGS (3)
  1. CIPROFLOXACIN [Suspect]
  2. CYCLOPHOSPHAMIDE [Suspect]
  3. FLUDARA [Suspect]

REACTIONS (4)
  - DYSPNOEA [None]
  - HAEMOLYTIC ANAEMIA [None]
  - MALAISE [None]
  - THROMBOCYTOPENIA [None]
